FAERS Safety Report 6757542-3 (Version None)
Quarter: 2010Q2

REPORT INFORMATION
  Report Type: 
  Country: None (occurrence: None)
  Receive Date: 20100607
  Receipt Date: 20100525
  Transmission Date: 20101027
  Serious: No
  Sender: FDA-Public Use
  Company Number: 2010BI002498

PATIENT
  Age: 42 Year
  Sex: Female

DRUGS (2)
  1. TYSABRI [Suspect]
     Indication: MULTIPLE SCLEROSIS
     Route: 042
     Dates: start: 20090217, end: 20090521
  2. TYSABRI [Suspect]
     Route: 042
     Dates: start: 20091016

REACTIONS (3)
  - CATHETER SITE PAIN [None]
  - FATIGUE [None]
  - POOR VENOUS ACCESS [None]
